FAERS Safety Report 8577414-1 (Version None)
Quarter: 2012Q3

REPORT INFORMATION
  Report Type: 
  Country: None (occurrence: None)
  Receive Date: 20120807
  Receipt Date: 20120725
  Transmission Date: 20120928
  Serious: No
  Sender: FDA-Public Use
  Company Number: US-ASTRAZENECA-2010SE52656

PATIENT
  Age: 80 Year
  Sex: Female

DRUGS (4)
  1. ACIPHEX [Concomitant]
  2. NEXIUM [Suspect]
     Route: 048
  3. BENTAL [Concomitant]
  4. CYMBALTA [Concomitant]

REACTIONS (7)
  - EAR PAIN [None]
  - MALAISE [None]
  - DRUG DOSE OMISSION [None]
  - SINUS DISORDER [None]
  - GENERALISED OEDEMA [None]
  - ASTHENIA [None]
  - ABDOMINAL PAIN UPPER [None]
